FAERS Safety Report 14268869 (Version 6)
Quarter: 2018Q3

REPORT INFORMATION
  Report Type: Spontaneous
  Country: US (occurrence: US)
  Receive Date: 20171211
  Receipt Date: 20180926
  Transmission Date: 20181010
  Serious: Yes (Other)
  Sender: FDA-Public Use
  Company Number: US-PFIZER INC-2017526822

PATIENT
  Age: 70 Year
  Sex: Female
  Weight: 59.86 kg

DRUGS (10)
  1. IBRANCE [Suspect]
     Active Substance: PALBOCICLIB
     Indication: BREAST CANCER METASTATIC
     Dosage: 125 MG, CYCLIC (ONCE DAILY BY MOUTH FOR 21 DAYS THEN OFF FOR 7 DAYS)
     Route: 048
     Dates: start: 20170316
  2. XGEVA [Concomitant]
     Active Substance: DENOSUMAB
     Indication: BONE DISORDER
     Dosage: UNK (INJECTION EVERY 28 DAYS)
     Dates: start: 20170401
  3. IBRANCE [Suspect]
     Active Substance: PALBOCICLIB
     Dosage: 100 MG, (ONCE DAILY BY MOUTH FOR 21 DAYS THEN OFF FOR 7 DAYS) ABOUT 10 DOSES
     Route: 048
  4. IBRANCE [Suspect]
     Active Substance: PALBOCICLIB
     Dosage: 75 MG, UNK (THE DOCTOR HAD ME ON ALTERNATING 75MG AND 100 MG BUT RIGHT NOW I^M ON JUST 75MG.)
  5. FASLODEX [Concomitant]
     Active Substance: FULVESTRANT
     Indication: AROMATASE INHIBITION THERAPY
     Dosage: UNK, EVERY 28 DAYS
     Dates: start: 20170316
  6. IBRANCE [Suspect]
     Active Substance: PALBOCICLIB
     Dosage: 75 MG, CYCLIC (ONCE DAILY BY MOUTH FOR 21 DAYS THEN OFF FOR 7 DAYS) FOR 3 MONTHS
     Route: 048
  7. CALCIUM [Concomitant]
     Active Substance: CALCIUM
     Indication: SUPPLEMENTATION THERAPY
     Dosage: 1200 IU, DAILY
     Dates: start: 201503
  8. IBRANCE [Suspect]
     Active Substance: PALBOCICLIB
     Dosage: 100 MG, ALTERNATE DAY (ALTERNATING DOSES OF 75MG ONE DAY THEN 100MG THE NEXT DAY FOR A 21 DAY CYCLE)
     Route: 048
  9. VITAMIN D [Concomitant]
     Active Substance: CHOLECALCIFEROL
     Indication: SUPPLEMENTATION THERAPY
     Dosage: 2000 IU, DAILY
     Dates: start: 201503
  10. IBRANCE [Suspect]
     Active Substance: PALBOCICLIB
     Dosage: 75 MG, ALTERNATE DAY (ALTERNATING DOSES OF 75MG ONE DAY THEN 100MG THE NEXT DAY FOR A 21 DAY CYCLE)
     Route: 048

REACTIONS (4)
  - Intentional underdose [Unknown]
  - Full blood count decreased [Recovered/Resolved]
  - Neutropenia [Recovered/Resolved]
  - White blood cell count decreased [Unknown]

NARRATIVE: CASE EVENT DATE: 201704
